FAERS Safety Report 5756145-7 (Version None)
Quarter: 2008Q2

REPORT INFORMATION
  Report Type: 
  Country: None (occurrence: None)
  Receive Date: 20080602
  Receipt Date: 20080528
  Transmission Date: 20081010
  Serious: Yes (Life-Threatening, Hospitalization)
  Sender: FDA-Public Use
  Company Number: US-MERCK-0805USA03501

PATIENT
  Age: 47 Year
  Sex: Female

DRUGS (3)
  1. PEPCID [Suspect]
     Indication: ABDOMINAL DISCOMFORT
     Route: 042
     Dates: start: 20080425
  2. LEVOXYL [Concomitant]
     Indication: HYPOTHYROIDISM
     Route: 065
  3. NAPROSYN [Concomitant]
     Indication: MUSCULOSKELETAL PAIN
     Route: 065
     Dates: start: 20080421, end: 20080424

REACTIONS (2)
  - ANGIOEDEMA [None]
  - MYOCARDIAL ISCHAEMIA [None]
